FAERS Safety Report 6070194-3 (Version None)
Quarter: 2009Q1

REPORT INFORMATION
  Report Type: 
  Country: None (occurrence: None)
  Receive Date: 20090204
  Receipt Date: 20090119
  Transmission Date: 20090719
  Serious: Yes (Hospitalization)
  Sender: FDA-Public Use
  Company Number: 6013045

PATIENT
  Age: 9 Month
  Sex: Female

DRUGS (1)
  1. CYANOKIT [Suspect]
     Indication: POISONING
     Dosage: 2.5 GM, 1 IN 1 D) INTRAOSSEOUS INFUSION
     Dates: start: 20041102, end: 20041102

REACTIONS (2)
  - INCORRECT ROUTE OF DRUG ADMINISTRATION [None]
  - OVERDOSE [None]
